FAERS Safety Report 24971457 (Version 1)
Quarter: 2025Q1

REPORT INFORMATION
  Report Type: Spontaneous
  Country: JP (occurrence: JP)
  Receive Date: 20250214
  Receipt Date: 20250214
  Transmission Date: 20250409
  Serious: Yes (Death, Other)
  Sender: MERCK SHARP & DOHME LLC
  Company Number: JP-MSD-M2024-46768

PATIENT
  Age: 77 Year

DRUGS (1)
  1. KEYTRUDA [Suspect]
     Active Substance: PEMBROLIZUMAB
     Indication: Non-small cell lung cancer stage IV
     Dosage: 200 MG, EVERY 3 WEEKS
     Route: 041
     Dates: start: 20240827, end: 20240903

REACTIONS (2)
  - Lymphangiosis carcinomatosa [Unknown]
  - Death [Fatal]

NARRATIVE: CASE EVENT DATE: 20240101
